FAERS Safety Report 15897204 (Version 4)
Quarter: 2019Q2

REPORT INFORMATION
  Report Type: Spontaneous
  Country: PL (occurrence: PL)
  Receive Date: 20190131
  Receipt Date: 20190417
  Transmission Date: 20190711
  Serious: Yes (Other)
  Sender: FDA-Public Use
  Company Number: PL-MYLANLABS-2018M1042774

PATIENT
  Age: 28 Year
  Sex: Female

DRUGS (14)
  1. DULOXETINE. [Suspect]
     Active Substance: DULOXETINE
     Indication: PRODUCT USED FOR UNKNOWN INDICATION
     Dosage: 50 MILLIGRAM, QD
  2. PREGABALIN. [Suspect]
     Active Substance: PREGABALIN
     Indication: FIBROMYALGIA
     Dosage: 450 MILLIGRAM, QD
  3. OLANZAPINE. [Suspect]
     Active Substance: OLANZAPINE
     Indication: MAJOR DEPRESSION
     Dosage: 10 MILLIGRAM, QD
  4. QUETIAPINE. [Suspect]
     Active Substance: QUETIAPINE
     Indication: DEPRESSION
     Dosage: 150 MILLIGRAM, QD
  5. QUETIAPINE. [Suspect]
     Active Substance: QUETIAPINE
     Indication: PERSONALITY DISORDER
  6. DULOXETINE. [Suspect]
     Active Substance: DULOXETINE
     Dosage: 60 MILLIGRAM, QD
     Dates: start: 201601
  7. VENLAFAXINE [Suspect]
     Active Substance: VENLAFAXINE HYDROCHLORIDE
     Indication: MAJOR DEPRESSION
     Dosage: 225 MILLIGRAM, QD
  8. VALPROIC ACID. [Suspect]
     Active Substance: VALPROIC ACID
     Indication: PRODUCT USED FOR UNKNOWN INDICATION
     Dosage: 300 MILLIGRAM, QD
     Route: 065
  9. CARBAMAZEPINE. [Suspect]
     Active Substance: CARBAMAZEPINE
     Indication: PERSONALITY DISORDER
     Dosage: 400 MILLIGRAM, QD
  10. PREGABALIN. [Suspect]
     Active Substance: PREGABALIN
     Indication: PERSONALITY DISORDER
     Dosage: 300 MILLIGRAM, QD
  11. VALPROIC ACID. [Suspect]
     Active Substance: VALPROIC ACID
     Indication: MAJOR DEPRESSION
     Dosage: 300 MILLIGRAM, QD
  12. QUETIAPINE. [Suspect]
     Active Substance: QUETIAPINE
     Indication: FIBROMYALGIA
  13. DOXEPIN [Concomitant]
     Active Substance: DOXEPIN
     Indication: PRODUCT USED FOR UNKNOWN INDICATION
     Dosage: UNK
  14. CARBAMAZEPINE. [Suspect]
     Active Substance: CARBAMAZEPINE
     Indication: FIBROMYALGIA

REACTIONS (12)
  - Suicide attempt [Recovered/Resolved]
  - Somnolence [Unknown]
  - Mental impairment [Recovering/Resolving]
  - Off label use [Unknown]
  - Therapy partial responder [Unknown]
  - Therapeutic product effect incomplete [Unknown]
  - Weight increased [Unknown]
  - Self esteem decreased [Recovering/Resolving]
  - Depression [Recovering/Resolving]
  - Feeling abnormal [Unknown]
  - Sedation [Unknown]
  - Confusional state [Unknown]

NARRATIVE: CASE EVENT DATE: 2014
